FAERS Safety Report 5446540-8 (Version None)
Quarter: 2007Q3

REPORT INFORMATION
  Report Type: 
  Country: None (occurrence: None)
  Receive Date: 20070907
  Receipt Date: 20070828
  Transmission Date: 20080115
  Serious: Yes (Hospitalization, Other)
  Sender: FDA-Public Use
  Company Number: US-PFIZER INC-2007072536

PATIENT
  Age: 67 Year
  Sex: Female

DRUGS (14)
  1. FLAGYL [Suspect]
     Indication: DIVERTICULITIS
  2. CLONAZEPAM [Suspect]
  3. LORTAB [Suspect]
  4. ACETAMINOPHEN [Concomitant]
  5. PROZAC [Concomitant]
  6. SYNTHROID [Concomitant]
  7. ATENOLOL [Concomitant]
  8. MONTELUKAST SODIUM [Concomitant]
  9. RHINOCORT [Concomitant]
  10. NEXIUM [Concomitant]
  11. LASIX [Concomitant]
  12. BENICAR [Concomitant]
  13. INVESTIGATIONAL DRUG [Concomitant]
     Dates: start: 20061110, end: 20061125
  14. ALL OTHER THERAPEUTIC PRODUCTS [Concomitant]
     Indication: BACK PAIN

REACTIONS (10)
  - ANOREXIA [None]
  - BACK PAIN [None]
  - COMPRESSION FRACTURE [None]
  - DIARRHOEA [None]
  - FALL [None]
  - INTERVERTEBRAL DISC DISORDER [None]
  - NAUSEA [None]
  - ORAL INTAKE REDUCED [None]
  - OSTEOARTHRITIS [None]
  - VOMITING [None]
